FAERS Safety Report 5827158-1 (Version None)
Quarter: 2008Q3

REPORT INFORMATION
  Report Type: 
  Country: None (occurrence: None)
  Receive Date: 20080729
  Receipt Date: 20080729
  Transmission Date: 20090109
  Serious: Yes (Other)
  Sender: FDA-Public Use
  Company Number: None

PATIENT
  Age: 37 Year
  Sex: Female
  Weight: 100.6985 kg

DRUGS (4)
  1. ZONALON [Suspect]
     Indication: PRURITUS
     Dosage: ONE THIN FILM EVERY NIGHT CUTANEOUS
     Route: 003
     Dates: start: 20080516, end: 20080530
  2. ZONALON [Suspect]
     Indication: ROSACEA
     Dosage: ONE THIN FILM EVERY NIGHT CUTANEOUS
     Route: 003
     Dates: start: 20080516, end: 20080530
  3. ZONALON [Suspect]
     Indication: PRURITUS
     Dosage: ONE THIN FILM EVERY NIGHT CUTANEOUS
     Route: 003
     Dates: start: 20080719, end: 20080719
  4. ZONALON [Suspect]
     Indication: ROSACEA
     Dosage: ONE THIN FILM EVERY NIGHT CUTANEOUS
     Route: 003
     Dates: start: 20080719, end: 20080719

REACTIONS (9)
  - BURNING SENSATION [None]
  - ERYTHEMA [None]
  - HAEMORRHAGE [None]
  - PAIN [None]
  - PARAESTHESIA [None]
  - PRURITUS [None]
  - PYREXIA [None]
  - SWELLING [None]
  - WOUND [None]
